FAERS Safety Report 17692051 (Version 1)
Quarter: 2020Q2

REPORT INFORMATION
  Report Type: Spontaneous
  Country: PL (occurrence: PL)
  Receive Date: 20200422
  Receipt Date: 20200422
  Transmission Date: 20200714
  Serious: Yes (Hospitalization, Other)
  Sender: FDA-Public Use
  Company Number: PL-MYLANLABS-2020M1038503

PATIENT
  Sex: Male

DRUGS (6)
  1. ATORVASTATIN [Suspect]
     Active Substance: ATORVASTATIN
     Indication: CARDIAC FAILURE
     Dosage: 20 MILLIGRAM, DOSE:  1 X 20 MG
     Route: 065
  2. EPLERENONE. [Suspect]
     Active Substance: EPLERENONE
     Indication: CARDIAC FAILURE
     Dosage: 50 MILLIGRAM, DOSE: 1 X 50 MG
     Route: 065
  3. PERINDOPRIL [Suspect]
     Active Substance: PERINDOPRIL
     Indication: CARDIAC FAILURE
     Dosage: 5 MILLIGRAM, DOSE: 1 X 5 MG
     Route: 065
  4. TORASEMIDE [Suspect]
     Active Substance: TORSEMIDE
     Indication: CARDIAC FAILURE
     Dosage: 5 MILLIGRAM, DOSE: 1 X 5 MG
     Route: 065
  5. NEBIVOLOL. [Suspect]
     Active Substance: NEBIVOLOL
     Indication: CARDIAC FAILURE
     Dosage: 5 MILLIGRAM, DOSE: 1 X 5 MG,
     Route: 065
  6. ACETYLSALICYLIC ACID [Suspect]
     Active Substance: ASPIRIN
     Indication: CARDIAC FAILURE
     Dosage: 75 MILLIGRAM, DOSE: 1 X 75 MG
     Route: 065

REACTIONS (7)
  - Respiratory failure [Unknown]
  - Therapeutic product effect incomplete [Unknown]
  - Hypotension [Unknown]
  - Chronic obstructive pulmonary disease [Unknown]
  - Acute myocardial infarction [Unknown]
  - Dyspnoea [Unknown]
  - Cardiac failure [Unknown]

NARRATIVE: CASE EVENT DATE: 2016
